FAERS Safety Report 8780732 (Version 1)
Quarter: 2012Q4

REPORT INFORMATION
  Report Type: Report from Study
  Country: US (occurrence: US)
  Receive Date: 20120913
  Receipt Date: 20120913
  Transmission Date: 20130627
  Serious: No
  Sender: FDA-Public Use
  Company Number: US-VERTEX PHARMACEUTICAL INC.-AE-2012-008398

PATIENT
  Age: 62 Year
  Sex: Male

DRUGS (4)
  1. INCIVEK [Suspect]
     Indication: HEPATITIS C
     Route: 048
  2. RIBAVIRIN [Concomitant]
     Indication: HEPATITIS C
  3. PEGASYS PROCLICK [Concomitant]
  4. CHANTIX [Concomitant]

REACTIONS (3)
  - Influenza like illness [Recovered/Resolved]
  - Dry mouth [Recovered/Resolved]
  - Diarrhoea [Unknown]
